FAERS Safety Report 6030013-8 (Version None)
Quarter: 2008Q4

REPORT INFORMATION
  Report Type: 
  Country: None (occurrence: None)
  Receive Date: 20081222
  Receipt Date: 20080912
  Transmission Date: 20090506
  Serious: Yes (Other)
  Sender: FDA-Public Use
  Company Number: US-WYE-H05917108

PATIENT
  Age: 16 Year
  Sex: Female

DRUGS (1)
  1. PRISTIQ [Suspect]
     Indication: BIPOLAR I DISORDER
     Dosage: FOUR 50 MG TABLETS, ORAL
     Route: 048
     Dates: start: 20080909, end: 20080909

REACTIONS (1)
  - INTENTIONAL OVERDOSE [None]
